FAERS Safety Report 9366989 (Version 1)
Quarter: 2013Q2

REPORT INFORMATION
  Report Type: Spontaneous
  Country: TR (occurrence: TR)
  Receive Date: 20130625
  Receipt Date: 20130625
  Transmission Date: 20140414
  Serious: Yes (Hospitalization, Other)
  Sender: FDA-Public Use
  Company Number: TR-GLAXOSMITHKLINE-B0902286A

PATIENT
  Age: 16 Year
  Sex: Female

DRUGS (1)
  1. ACYCLOVIR [Suspect]
     Indication: ENCEPHALITIS
     Dosage: 4.8G CUMULATIVE DOSE
     Route: 042

REACTIONS (11)
  - Renal failure acute [Recovering/Resolving]
  - Renal failure [Recovering/Resolving]
  - Tubulointerstitial nephritis [Recovering/Resolving]
  - Vomiting [Unknown]
  - Blood urea increased [Unknown]
  - Blood creatinine increased [Unknown]
  - Proteinuria [Unknown]
  - Beta 2 microglobulin urine increased [Unknown]
  - Oliguria [Unknown]
  - Hypervolaemia [Unknown]
  - Hypertension [Unknown]
